FAERS Safety Report 7124276-5 (Version None)
Quarter: 2010Q4

REPORT INFORMATION
  Report Type: 
  Country: None (occurrence: None)
  Receive Date: 20101126
  Receipt Date: 20101115
  Transmission Date: 20110411
  Serious: Yes (Other)
  Sender: FDA-Public Use
  Company Number: PHHY2010FR62035

PATIENT
  Sex: Male
  Weight: 62 kg

DRUGS (2)
  1. EXELON [Suspect]
     Dosage: 4.6 MG
     Route: 062
  2. SINEMET [Suspect]

REACTIONS (2)
  - CONFUSIONAL STATE [None]
  - HALLUCINATION [None]
